FAERS Safety Report 13814212 (Version 1)
Quarter: 2017Q3

REPORT INFORMATION
  Report Type: Spontaneous
  Country: US (occurrence: US)
  Receive Date: 20170728
  Receipt Date: 20170728
  Transmission Date: 20171127
  Serious: Yes (Hospitalization)
  Sender: FDA-Public Use
  Company Number: None

PATIENT
  Age: 55 Year
  Sex: Female
  Weight: 63.6 kg

DRUGS (1)
  1. ENOXAPARIN 80MG/0.8ML PFS [Suspect]
     Active Substance: ENOXAPARIN SODIUM
     Indication: PANCREATIC CARCINOMA
     Route: 058
     Dates: start: 20170224

REACTIONS (2)
  - Deep vein thrombosis [None]
  - Internal haemorrhage [None]

NARRATIVE: CASE EVENT DATE: 20170516
